FAERS Safety Report 8187698-X (Version None)
Quarter: 2012Q1

REPORT INFORMATION
  Report Type: 
  Country: None (occurrence: None)
  Receive Date: 20120306
  Receipt Date: 20111122
  Transmission Date: 20120608
  Serious: No
  Sender: FDA-Public Use
  Company Number: US-GLAXOSMITHKLINE-A0954342A

PATIENT
  Age: 35 Year
  Sex: Female

DRUGS (2)
  1. LAMICTAL [Suspect]
     Indication: BIPOLAR II DISORDER
     Dosage: 50MG PER DAY
     Route: 048
     Dates: start: 20110924
  2. NO CONCURRENT MEDICATION [Concomitant]

REACTIONS (5)
  - EAR DISCOMFORT [None]
  - PRURITUS [None]
  - PYREXIA [None]
  - HYPERHIDROSIS [None]
  - RASH [None]
